FAERS Safety Report 4313349-8 (Version None)
Quarter: 2004Q1

REPORT INFORMATION
  Report Type: 
  Country: None (occurrence: None)
  Receive Date: 20040304
  Receipt Date: 20040227
  Transmission Date: 20041129
  Serious: Yes (Hospitalization)
  Sender: FDA-Public Use
  Company Number: US-JNJFOC-20040202408

PATIENT
  Sex: Male

DRUGS (1)
  1. LEVAQUIN [Suspect]
     Indication: DRUG USE FOR UNKNOWN INDICATION

REACTIONS (7)
  - DEPRESSION [None]
  - DRUG HYPERSENSITIVITY [None]
  - MALE SEXUAL DYSFUNCTION [None]
  - PENILE DISCHARGE [None]
  - PENILE HAEMORRHAGE [None]
  - PURULENT DISCHARGE [None]
  - STEVENS-JOHNSON SYNDROME [None]
